FAERS Safety Report 15870885 (Version 1)
Quarter: 2019Q1

REPORT INFORMATION
  Report Type: Other
  Country: US (occurrence: US)
  Receive Date: 20190126
  Receipt Date: 20190126
  Transmission Date: 20190417
  Serious: No
  Sender: FDA-Public Use
  Company Number: US-ACORDA-ACO_152907_2018

PATIENT
  Age: 67 Year
  Sex: Female

DRUGS (1)
  1. AMPYRA [Suspect]
     Active Substance: DALFAMPRIDINE
     Indication: MULTIPLE SCLEROSIS
     Dosage: 10 MILLIGRAM
     Route: 065
     Dates: start: 20180801, end: 20180806

REACTIONS (10)
  - Nausea [Unknown]
  - Muscle spasms [Unknown]
  - Pyrexia [Unknown]
  - Back pain [Unknown]
  - Condition aggravated [Unknown]
  - Vomiting [Unknown]
  - Dysphagia [Unknown]
  - Dizziness [Unknown]
  - Arthralgia [Unknown]
  - Gait disturbance [Unknown]

NARRATIVE: CASE EVENT DATE: 20180806
